FAERS Safety Report 16483953 (Version 1)
Quarter: 2019Q3

REPORT INFORMATION
  Report Type: Spontaneous
  Country: US (occurrence: US)
  Receive Date: 20190625
  Receipt Date: 20190625
  Transmission Date: 20191004
  Serious: No
  Sender: FDA-Public Use
  Company Number: None

PATIENT
  Age: 14 Year
  Sex: Female
  Weight: 41.5 kg

DRUGS (2)
  1. CEFTAZIDIME. [Suspect]
     Active Substance: CEFTAZIDIME
     Indication: INFECTIVE PULMONARY EXACERBATION OF CYSTIC FIBROSIS
     Route: 042
     Dates: start: 20190612, end: 20190624
  2. TOBRAMYCIN. [Concomitant]
     Active Substance: TOBRAMYCIN
     Dates: start: 20190612, end: 20190625

REACTIONS (4)
  - Infusion related reaction [None]
  - Drug hypersensitivity [None]
  - Throat irritation [None]
  - Throat tightness [None]

NARRATIVE: CASE EVENT DATE: 20190624
